FAERS Safety Report 6293801-9 (Version None)
Quarter: 2009Q3

REPORT INFORMATION
  Report Type: 
  Country: None (occurrence: None)
  Receive Date: 20090803
  Receipt Date: 20090723
  Transmission Date: 20100115
  Serious: Yes (Other)
  Sender: FDA-Public Use
  Company Number: PL-AMGEN-US339011

PATIENT
  Sex: Female
  Weight: 85 kg

DRUGS (7)
  1. ENBREL [Suspect]
     Indication: RHEUMATOID ARTHRITIS
     Route: 058
     Dates: start: 20081003, end: 20090619
  2. ATENOLOL [Concomitant]
  3. HYDROCHLOROTHIAZIDE [Concomitant]
  4. CALPEROS [Concomitant]
  5. ALFACALCIDOL [Concomitant]
  6. ENARENAL [Concomitant]
  7. METYPRED [Concomitant]

REACTIONS (2)
  - BLOOD CREATININE [None]
  - BLOOD UREA [None]
